FAERS Safety Report 7023535-4 (Version None)
Quarter: 2010Q3

REPORT INFORMATION
  Report Type: 
  Country: None (occurrence: None)
  Receive Date: 20100930
  Receipt Date: 20100922
  Transmission Date: 20110219
  Serious: Yes (Other)
  Sender: FDA-Public Use
  Company Number: US-AMGEN-QUU436092

PATIENT
  Sex: Female
  Weight: 108.5 kg

DRUGS (7)
  1. NEULASTA [Suspect]
     Indication: CHEMOTHERAPY
     Route: 058
     Dates: start: 20100806, end: 20100828
  2. ETOPOSIDE [Concomitant]
     Dates: start: 20100803
  3. IFOSFAMIDE [Concomitant]
     Dates: start: 20100803
  4. CARBOPLATIN [Concomitant]
     Dates: start: 20100803
  5. CEPHALEXIN [Concomitant]
     Dates: end: 20100825
  6. PAROXETINE HYDROCHLORIDE [Concomitant]
     Route: 048
  7. SYNTHROID [Concomitant]
     Route: 048

REACTIONS (4)
  - HYPERSENSITIVITY [None]
  - PRURITUS [None]
  - RASH [None]
  - URTICARIA [None]
